FAERS Safety Report 13592195 (Version 4)
Quarter: 2017Q4

REPORT INFORMATION
  Report Type: Report from Study
  Country: None (occurrence: US)
  Receive Date: 20170529
  Receipt Date: 20171103
  Transmission Date: 20180320
  Serious: Yes (Hospitalization, Other)
  Sender: FDA-Public Use
  Company Number: US-ABBVIE-16K-163-1807694-00

PATIENT
  Age: 66 Year
  Sex: Male

DRUGS (5)
  1. HUMIRA [Suspect]
     Active Substance: ADALIMUMAB
     Route: 058
  2. LISINOPRIL + HIDROCLOROTIAZIDE [Concomitant]
     Indication: PRODUCT USED FOR UNKNOWN INDICATION
  3. LOVASTATIN. [Concomitant]
     Active Substance: LOVASTATIN
     Indication: PRODUCT USED FOR UNKNOWN INDICATION
  4. HUMIRA [Suspect]
     Active Substance: ADALIMUMAB
     Indication: CROHN^S DISEASE
     Route: 058
     Dates: start: 2009
  5. METHOTREXATE. [Concomitant]
     Active Substance: METHOTREXATE
     Indication: PRODUCT USED FOR UNKNOWN INDICATION

REACTIONS (28)
  - Loss of consciousness [Unknown]
  - Tuberculosis [Recovered/Resolved]
  - Gastrointestinal haemorrhage [Not Recovered/Not Resolved]
  - Loss of consciousness [Recovered/Resolved]
  - Dizziness [Unknown]
  - Wheezing [Unknown]
  - Nausea [Unknown]
  - Influenza [Recovering/Resolving]
  - Diarrhoea [Recovered/Resolved]
  - Nasopharyngitis [Unknown]
  - Skin burning sensation [Unknown]
  - Immunodeficiency [Not Recovered/Not Resolved]
  - Body temperature decreased [Unknown]
  - Respiratory tract congestion [Unknown]
  - Blood urine present [Not Recovered/Not Resolved]
  - Crohn^s disease [Unknown]
  - Decreased appetite [Unknown]
  - Influenza [Recovered/Resolved]
  - Drug hypersensitivity [Unknown]
  - Fungal skin infection [Unknown]
  - Vomiting [Unknown]
  - Crohn^s disease [Recovered/Resolved]
  - Vomiting [Recovered/Resolved]
  - Mycobacterium tuberculosis complex test positive [Unknown]
  - Lung disorder [Not Recovered/Not Resolved]
  - Adverse drug reaction [Unknown]
  - Furuncle [Unknown]
  - Injection site pain [Recovered/Resolved]

NARRATIVE: CASE EVENT DATE: 201612
